FAERS Safety Report 4833959-9 (Version None)
Quarter: 2005Q4

REPORT INFORMATION
  Report Type: 
  Country: None (occurrence: None)
  Receive Date: 20051118
  Receipt Date: 20051118
  Transmission Date: 20060501
  Serious: Yes (Other)
  Sender: FDA-Public Use
  Company Number: None

PATIENT
  Sex: Female
  Weight: 68.4932 kg

DRUGS (2)
  1. ESKALITH CR [Suspect]
     Indication: BIPOLAR DISORDER
     Dosage: 450 MG  TWICE DAILY
     Dates: start: 19980415, end: 20051002
  2. LITHOBID [Suspect]
     Indication: BIPOLAR DISORDER
     Dosage: 300 MG   THREE TIMES DAILY
     Dates: start: 20051002, end: 20051101

REACTIONS (8)
  - DEPRESSION [None]
  - FEELING ABNORMAL [None]
  - INSOMNIA [None]
  - LETHARGY [None]
  - NEGATIVE THOUGHTS [None]
  - PANIC ATTACK [None]
  - PHARMACEUTICAL PRODUCT COMPLAINT [None]
  - SUICIDAL IDEATION [None]
